FAERS Safety Report 13678899 (Version 1)
Quarter: 2017Q2

REPORT INFORMATION
  Report Type: Report from Study
  Country: US (occurrence: US)
  Receive Date: 20170622
  Receipt Date: 20170622
  Transmission Date: 20170830
  Serious: Yes (Other)
  Sender: FDA-Public Use
  Company Number: PHHY2017US046937

PATIENT

DRUGS (10)
  1. COLISTIN [Suspect]
     Active Substance: COLISTIN
     Dosage: 75 OT, BID
     Route: 065
     Dates: start: 20170301, end: 20170328
  2. TOBI PODHALER [Suspect]
     Active Substance: TOBRAMYCIN
     Indication: CYSTIC FIBROSIS
     Dosage: 112 OT, BID
     Route: 055
     Dates: start: 20160501, end: 20160528
  3. TOBI [Suspect]
     Active Substance: TOBRAMYCIN
     Dosage: 300 OT, BID
     Route: 055
     Dates: start: 20170201, end: 20170228
  4. TOBI [Suspect]
     Active Substance: TOBRAMYCIN
     Indication: CYSTIC FIBROSIS
     Dosage: 300 OT, BID
     Route: 055
     Dates: start: 20160701, end: 20160728
  5. TOBI [Suspect]
     Active Substance: TOBRAMYCIN
     Dosage: 300 OT, BID
     Route: 055
     Dates: start: 20170401, end: 20170428
  6. COLISTIN [Suspect]
     Active Substance: COLISTIN
     Indication: PRODUCT USED FOR UNKNOWN INDICATION
     Dosage: 75 OT, BID
     Route: 065
     Dates: start: 20160901, end: 20160928
  7. COLISTIN [Suspect]
     Active Substance: COLISTIN
     Dosage: 75 OT, BID
     Route: 065
     Dates: start: 20170101, end: 20170128
  8. COLISTIN [Suspect]
     Active Substance: COLISTIN
     Dosage: 75 OT, BID
     Route: 065
     Dates: start: 20061101, end: 20161128
  9. TOBI PODHALER [Suspect]
     Active Substance: TOBRAMYCIN
     Indication: PSEUDOMONAS INFECTION
  10. TOBI [Suspect]
     Active Substance: TOBRAMYCIN
     Indication: PSEUDOMONAS INFECTION
     Dosage: 300 OT, BID
     Route: 055
     Dates: start: 20161201, end: 20161228

REACTIONS (8)
  - Infective pulmonary exacerbation of cystic fibrosis [Recovered/Resolved]
  - Infective pulmonary exacerbation of cystic fibrosis [Recovered/Resolved]
  - Infective pulmonary exacerbation of cystic fibrosis [Recovered/Resolved]
  - Infective pulmonary exacerbation of cystic fibrosis [Recovered/Resolved]
  - Pulmonary function test decreased [Recovered/Resolved]
  - Infective pulmonary exacerbation of cystic fibrosis [Recovered/Resolved]
  - Muscle spasms [Not Recovered/Not Resolved]
  - Infective pulmonary exacerbation of cystic fibrosis [Not Recovered/Not Resolved]

NARRATIVE: CASE EVENT DATE: 20160621
